FAERS Safety Report 10553676 (Version 2)
Quarter: 2014Q4

REPORT INFORMATION
  Report Type: Spontaneous
  Country: JP (occurrence: None)
  Receive Date: 20141028
  Receipt Date: 20141121
  Transmission Date: 20150529
  Serious: Yes (Other)
  Sender: FDA-Public Use
  Company Number: JP2014JPN004749

PATIENT
  Age: 34 Year
  Sex: Female

DRUGS (2)
  1. PAXIL [Suspect]
     Active Substance: PAROXETINE HYDROCHLORIDE
     Route: 048
     Dates: start: 201112
  2. LAMICTAL [Suspect]
     Active Substance: LAMOTRIGINE
     Route: 048
     Dates: start: 201202, end: 201202

REACTIONS (1)
  - Oculomucocutaneous syndrome [None]
